FAERS Safety Report 17988060 (Version 1)
Quarter: 2020Q3

REPORT INFORMATION
  Report Type: Spontaneous
  Country: US (occurrence: US)
  Receive Date: 20200706
  Receipt Date: 20200706
  Transmission Date: 20201103
  Serious: Yes (Death)
  Sender: FDA-Public Use
  Company Number: None

PATIENT
  Age: 60 Year
  Sex: Male

DRUGS (9)
  1. AZITHROMYCIN ANHYDROUS. [Concomitant]
     Active Substance: AZITHROMYCIN ANHYDROUS
  2. REMDESIVIR. [Suspect]
     Active Substance: REMDESIVIR
     Indication: COVID-19
     Dosage: ?          OTHER FREQUENCY:EVERY 24 HOUR;?
     Route: 042
     Dates: start: 20200613
  3. ENOXAPARIN [Concomitant]
     Active Substance: ENOXAPARIN
  4. GUAIFENESIN. [Concomitant]
     Active Substance: GUAIFENESIN
  5. ASPIRIN. [Concomitant]
     Active Substance: ASPIRIN
  6. CEFTRIAXONE. [Concomitant]
     Active Substance: CEFTRIAXONE
  7. INSULIN ASPART [Concomitant]
     Active Substance: INSULIN ASPART
  8. REMDESIVIR. [Suspect]
     Active Substance: REMDESIVIR
     Indication: COVID-19
     Route: 042
     Dates: start: 20200612, end: 20200612
  9. ALBUTEROL. [Concomitant]
     Active Substance: ALBUTEROL

REACTIONS (13)
  - SARS-CoV-2 test positive [None]
  - Blood urea increased [None]
  - Blood sodium decreased [None]
  - Sepsis [None]
  - COVID-19 pneumonia [None]
  - Acute respiratory distress syndrome [None]
  - Renal tubular necrosis [None]
  - Cardiac arrest [None]
  - Oxygen saturation decreased [None]
  - Blood creatinine increased [None]
  - Blood calcium decreased [None]
  - Respiratory failure [None]
  - Acute kidney injury [None]

NARRATIVE: CASE EVENT DATE: 20200614
